FAERS Safety Report 12945842 (Version 4)
Quarter: 2017Q1

REPORT INFORMATION
  Report Type: Spontaneous
  Country: US (occurrence: US)
  Receive Date: 20161116
  Receipt Date: 20170221
  Transmission Date: 20170428
  Serious: Yes (Hospitalization)
  Sender: FDA-Public Use
  Company Number: US-PFIZER INC-2016524810

PATIENT
  Age: 75 Year
  Sex: Female

DRUGS (26)
  1. LISINOPRIL. [Concomitant]
     Active Substance: LISINOPRIL
     Dosage: 20 MG, UNK
  2. IRON [Concomitant]
     Active Substance: IRON
     Dosage: 325 MG, 2X/DAY (65 FE)
     Route: 048
  3. MAGNESIUM [Concomitant]
     Active Substance: MAGNESIUM
     Dosage: 250 MG, 2X/DAY
     Route: 048
  4. CLONIDINE HCL [Concomitant]
     Active Substance: CLONIDINE HYDROCHLORIDE
     Dosage: 0.1 MG, UNK
     Route: 048
  5. CLONIDINE HCL [Concomitant]
     Active Substance: CLONIDINE HYDROCHLORIDE
     Dosage: 0.2 MG, 2X/DAY
     Route: 048
  6. PHILLIPS MILK OF MAGNESIA [Concomitant]
     Dosage: UNK, (400 MG/5ML)
     Route: 048
  7. ROCALTROL [Concomitant]
     Active Substance: CALCITRIOL
     Dosage: 0.25 UG, DAILY
     Route: 048
  8. TYLENOL [Concomitant]
     Active Substance: ACETAMINOPHEN
     Dosage: 325 MG, UNK
     Route: 048
  9. DOCUSATE SODIUM. [Concomitant]
     Active Substance: DOCUSATE SODIUM
     Dosage: 100 MG, DAILY
     Route: 048
  10. VITAMIN D [Concomitant]
     Active Substance: CHOLECALCIFEROL
     Dosage: UNK
  11. SUTENT [Suspect]
     Active Substance: SUNITINIB MALATE
     Indication: GASTROINTESTINAL STROMAL TUMOUR
     Dosage: 50 MG, UNK (AS DIRECTED)
     Route: 048
     Dates: start: 201402, end: 201611
  12. LEVOTHYROXIN [Concomitant]
     Active Substance: LEVOTHYROXINE
     Dosage: 150 UG, DAILY
     Route: 048
  13. OMEPRAZOLE. [Concomitant]
     Active Substance: OMEPRAZOLE
     Dosage: UNK
  14. FISH OIL [Concomitant]
     Active Substance: FISH OIL
     Dosage: 1200 MG, AS DIRECTED
     Route: 048
  15. VITAMIN C [Concomitant]
     Active Substance: ASCORBIC ACID
     Dosage: 1000 MG, DAILY
     Route: 048
  16. AMLODIPINE [Concomitant]
     Active Substance: AMLODIPINE BESYLATE
     Dosage: 10 MG, DAILY  (AS DIRECTED)
     Route: 048
  17. BUMETANIDE. [Concomitant]
     Active Substance: BUMETANIDE
     Dosage: 3 MG (3 TABLETS), 2X/DAY
     Route: 048
  18. LABETALOL HCL [Concomitant]
     Active Substance: LABETALOL HYDROCHLORIDE
     Dosage: 200 MG, 2X/DAY
     Route: 048
  19. SUTENT [Suspect]
     Active Substance: SUNITINIB MALATE
     Indication: SMALL INTESTINE CARCINOMA
     Dosage: 50 MG, CYCLIC (EVERY DAY FOR 2 WEEKS ON AND 1WEEK OFF)
     Route: 048
     Dates: start: 20140206
  20. SUTENT [Suspect]
     Active Substance: SUNITINIB MALATE
     Dosage: 50 MG, CYCLIC (DAILY X 2 WEEKS, THEN 1 WEEK OFF)
     Route: 048
     Dates: start: 20140403
  21. IRON + VITAMIN C [Concomitant]
     Active Substance: ASCORBIC ACID\IRON
     Dosage: 65-125 MG
  22. SPIRONOLACTONE. [Concomitant]
     Active Substance: SPIRONOLACTONE
     Dosage: UNK
  23. ARANESP [Concomitant]
     Active Substance: DARBEPOETIN ALFA
     Dosage: UNK, (100 MCG/0.5ML SOLN)
  24. HYDRALAZINE HCL [Concomitant]
     Active Substance: HYDRALAZINE HYDROCHLORIDE
     Dosage: 25 MG, 2X/DAY
     Route: 048
     Dates: start: 20140911
  25. METAMUCIL [Concomitant]
     Active Substance: PLANTAGO SEED
     Dosage: UNK
  26. TYLENOL ARTHRITIS PAIN [Concomitant]
     Active Substance: ACETAMINOPHEN
     Indication: ARTHRITIS
     Dosage: 650 MG, DAILY (8 HOUR)

REACTIONS (5)
  - Pleural effusion [Not Recovered/Not Resolved]
  - Pulmonary oedema [Not Recovered/Not Resolved]
  - Generalised oedema [Not Recovered/Not Resolved]
  - Pain [Not Recovered/Not Resolved]
  - Dyspnoea [Not Recovered/Not Resolved]

NARRATIVE: CASE EVENT DATE: 201611
